FAERS Safety Report 21387818 (Version 1)
Quarter: 2022Q3

REPORT INFORMATION
  Report Type: Spontaneous
  Country: US (occurrence: US)
  Receive Date: 20220928
  Receipt Date: 20220928
  Transmission Date: 20221027
  Serious: Yes (Death)
  Sender: FDA-Public Use
  Company Number: US-JNJFOC-20220956691

PATIENT
  Age: 31 Year
  Sex: Male

DRUGS (1)
  1. DIPHENHYDRAMINE HYDROCHLORIDE [Suspect]
     Active Substance: DIPHENHYDRAMINE HYDROCHLORIDE
     Indication: Product used for unknown indication
     Route: 065

REACTIONS (13)
  - Toxicity to various agents [Fatal]
  - Hypotension [Fatal]
  - Electrocardiogram QRS complex prolonged [Fatal]
  - Coma [Fatal]
  - Depressed level of consciousness [Fatal]
  - Metabolic acidosis [Fatal]
  - Anion gap [Fatal]
  - Drug-induced liver injury [Fatal]
  - Coagulopathy [Fatal]
  - Leukocytosis [Fatal]
  - Acute kidney injury [Fatal]
  - Rhabdomyolysis [Fatal]
  - Cardiac arrest [Fatal]
